FAERS Safety Report 23432226 (Version 1)
Quarter: 2024Q1

REPORT INFORMATION
  Report Type: Spontaneous
  Country: US (occurrence: None)
  Receive Date: 20240122
  Receipt Date: 20240122
  Transmission Date: 20240409
  Serious: Yes (Other)
  Sender: FDA-Public Use
  Company Number: None

PATIENT
  Age: 65 Year
  Sex: Female

DRUGS (1)
  1. CYANOCOBALAMIN\SEMAGLUTIDE [Suspect]
     Active Substance: CYANOCOBALAMIN\SEMAGLUTIDE
     Indication: Weight decreased
     Dosage: 0.05 MG WEEKLY SUBCUTANEOUS?
     Route: 058
     Dates: start: 20240121

REACTIONS (2)
  - Vomiting [None]
  - Incorrect dose administered [None]

NARRATIVE: CASE EVENT DATE: 20240122
